FAERS Safety Report 6857225-5 (Version None)
Quarter: 2010Q3

REPORT INFORMATION
  Report Type: 
  Country: None (occurrence: None)
  Receive Date: 20100719
  Receipt Date: 20100708
  Transmission Date: 20110219
  Serious: Yes (Other)
  Sender: FDA-Public Use
  Company Number: FR-AMGEN-QUU423880

PATIENT
  Sex: Female

DRUGS (1)
  1. ENBREL [Suspect]
     Indication: ANKYLOSING SPONDYLITIS
     Route: 058
     Dates: start: 20090901, end: 20100301

REACTIONS (7)
  - ANIMAL BITE [None]
  - ANKYLOSING SPONDYLITIS [None]
  - BRONCHITIS [None]
  - CONDITION AGGRAVATED [None]
  - GALLBLADDER OPERATION [None]
  - INJECTION SITE ERYTHEMA [None]
  - WOUND INFECTION [None]
